FAERS Safety Report 5242741-2 (Version None)
Quarter: 2007Q1

REPORT INFORMATION
  Report Type: 
  Country: None (occurrence: None)
  Receive Date: 20070221
  Receipt Date: 20070212
  Transmission Date: 20070707
  Serious: Yes (Hospitalization)
  Sender: FDA-Public Use
  Company Number: GB-ROCHE-482808

PATIENT
  Sex: Female

DRUGS (4)
  1. LARIAM [Suspect]
     Indication: MALARIA PROPHYLAXIS
     Route: 065
     Dates: end: 20061115
  2. LARIAM [Suspect]
     Route: 065
     Dates: start: 20051115
  3. LARIAM [Suspect]
     Route: 065
  4. LARIAM [Suspect]
     Route: 065

REACTIONS (1)
  - RENAL FAILURE ACUTE [None]
